FAERS Safety Report 15112483 (Version 1)
Quarter: 2018Q3

REPORT INFORMATION
  Report Type: Spontaneous
  Country: IT (occurrence: IT)
  Receive Date: 20180705
  Receipt Date: 20180705
  Transmission Date: 20181010
  Serious: Yes (Other)
  Sender: FDA-Public Use
  Company Number: IT-BAYER-2018-120915

PATIENT
  Sex: Male

DRUGS (1)
  1. XOFIGO [Suspect]
     Active Substance: RADIUM RA-223 DICHLORIDE

REACTIONS (5)
  - Myelodysplastic syndrome [None]
  - Adverse event [None]
  - Haemoglobin decreased [Not Recovered/Not Resolved]
  - Pancytopenia [None]
  - Red blood cell count decreased [Not Recovered/Not Resolved]
